FAERS Safety Report 6856789-5 (Version None)
Quarter: 2010Q3

REPORT INFORMATION
  Report Type: 
  Country: None (occurrence: None)
  Receive Date: 20100714
  Receipt Date: 20100708
  Transmission Date: 20110219
  Serious: Yes (Hospitalization, Other)
  Sender: FDA-Public Use
  Company Number: WAES 1006USA03726

PATIENT
  Age: 75 Year
  Sex: Female
  Weight: 76.6579 kg

DRUGS (2)
  1. CAP VORINOSTAT UNK [Suspect]
     Dosage: 400 MG/DAILY/PO
     Route: 048
     Dates: start: 20100608
  2. VELCADE [Suspect]
     Dosage: 2.3 MG/IV
     Route: 042
     Dates: start: 20100608

REACTIONS (8)
  - ELECTROCARDIOGRAM QT PROLONGED [None]
  - FALL [None]
  - FEMUR FRACTURE [None]
  - FLUID OVERLOAD [None]
  - HIP FRACTURE [None]
  - MYOCARDIAL INFARCTION [None]
  - MYOCARDIAL ISCHAEMIA [None]
  - PLATELET COUNT DECREASED [None]
